FAERS Safety Report 20861980 (Version 1)
Quarter: 2022Q2

REPORT INFORMATION
  Report Type: Report from Study
  Country: IT (occurrence: IT)
  Receive Date: 20220523
  Receipt Date: 20220523
  Transmission Date: 20220721
  Serious: Yes (Other)
  Sender: FDA-Public Use
  Company Number: None

PATIENT
  Age: 27 Year
  Sex: Female

DRUGS (1)
  1. MEDROL [Suspect]
     Active Substance: METHYLPREDNISOLONE
     Indication: Hypersensitivity
     Dosage: 16 MG, 1X/DAY
     Dates: start: 20220103, end: 20220108

REACTIONS (5)
  - Angioedema [Recovering/Resolving]
  - Dysphagia [Recovering/Resolving]
  - Rash maculo-papular [Recovering/Resolving]
  - Injury [Recovering/Resolving]
  - Pruritus [Recovering/Resolving]

NARRATIVE: CASE EVENT DATE: 20220108
